FAERS Safety Report 22321386 (Version 1)
Quarter: 2023Q2

REPORT INFORMATION
  Report Type: Spontaneous
  Country: US (occurrence: US)
  Receive Date: 20230515
  Receipt Date: 20230515
  Transmission Date: 20230722
  Serious: Yes (Other)
  Sender: FDA-Public Use
  Company Number: US-VERTEX PHARMACEUTICALS-2023-006714

PATIENT
  Sex: Female

DRUGS (1)
  1. TRIKAFTA [Suspect]
     Active Substance: ELEXACAFTOR\IVACAFTOR\TEZACAFTOR
     Indication: Cystic fibrosis
     Dosage: UNKNOWN FREQUENCY
     Route: 048

REACTIONS (6)
  - Abortion spontaneous [Unknown]
  - Haemorrhage in pregnancy [Unknown]
  - Exposure via father [Unknown]
  - Breech presentation [Unknown]
  - Vaginal haemorrhage [Unknown]
  - Vasa praevia [Unknown]
